FAERS Safety Report 8397139 (Version 7)
Quarter: 2013Q2

REPORT INFORMATION
  Report Type: Spontaneous
  Country: US (occurrence: US)
  Receive Date: 20120209
  Receipt Date: 20130415
  Transmission Date: 20140414
  Serious: Yes (Other)
  Sender: FDA-Public Use
  Company Number: US-PFIZER INC-2012034172

PATIENT
  Age: 62 Year
  Sex: Female
  Weight: 53.06 kg

DRUGS (6)
  1. CELEBREX [Suspect]
     Indication: PAIN
     Dosage: 200 MG, 1X/DAY
     Route: 048
     Dates: start: 2003
  2. CELEBREX [Suspect]
     Indication: ARTHRITIS
     Dosage: 200 MG, 2X/DAY
  3. CELEBREX [Suspect]
     Indication: SPINAL FUSION SURGERY
  4. CELEBREX [Suspect]
     Indication: SPINAL FUSION SURGERY
  5. CELEBREX [Suspect]
     Indication: RADIATION ASSOCIATED PAIN
  6. CELEBREX [Suspect]
     Indication: BACK PAIN

REACTIONS (7)
  - Nerve compression [Not Recovered/Not Resolved]
  - Intervertebral disc protrusion [Not Recovered/Not Resolved]
  - Hypoaesthesia [Not Recovered/Not Resolved]
  - Neck pain [Not Recovered/Not Resolved]
  - Back pain [Not Recovered/Not Resolved]
  - Nervous system disorder [Not Recovered/Not Resolved]
  - Arthritis [Not Recovered/Not Resolved]
